FAERS Safety Report 5284863-6 (Version None)
Quarter: 2007Q2

REPORT INFORMATION
  Report Type: 
  Country: None (occurrence: None)
  Receive Date: 20070403
  Receipt Date: 20070323
  Transmission Date: 20071010
  Serious: Yes (Hospitalization)
  Sender: FDA-Public Use
  Company Number: IT-ROCHE-489905

PATIENT
  Age: 86 Year
  Sex: Female

DRUGS (10)
  1. KETOROLAC TROMETHAMINE [Suspect]
     Route: 030
     Dates: start: 20070303, end: 20070303
  2. AULIN [Suspect]
     Route: 048
     Dates: start: 20070303, end: 20070304
  3. LOBIVON [Concomitant]
     Route: 048
     Dates: start: 20040615
  4. MONOCINQUE [Concomitant]
     Route: 048
     Dates: start: 20040615
  5. ASPIRIN [Concomitant]
     Route: 048
     Dates: start: 20040615
  6. PRAVASELECT [Concomitant]
     Route: 048
     Dates: start: 20040615
  7. LANSOX [Concomitant]
     Route: 048
     Dates: start: 20050615
  8. ALLOPURINOL [Concomitant]
     Route: 048
     Dates: start: 20050615
  9. VALPRESSION [Concomitant]
     Route: 048
     Dates: start: 20050615
  10. LASIX [Concomitant]
     Route: 048
     Dates: start: 20020615

REACTIONS (2)
  - ATRIAL FIBRILLATION [None]
  - RENAL FAILURE ACUTE [None]
